FAERS Safety Report 7487522-4 (Version None)
Quarter: 2011Q2

REPORT INFORMATION
  Report Type: 
  Country: None (occurrence: None)
  Receive Date: 20110518
  Receipt Date: 20110428
  Transmission Date: 20111010
  Serious: No
  Sender: FDA-Public Use
  Company Number: US-B.I. PHARMACEUTICALS,INC./RIDGEFIELD-2011-BP-07255BP

PATIENT
  Sex: Female

DRUGS (11)
  1. MULTIVITAMIN [Concomitant]
  2. SPIRIVA [Suspect]
     Indication: DYSPNOEA
     Dosage: 18 MCG
     Route: 055
     Dates: start: 20100301
  3. CALCIUM CARBONATE [Concomitant]
  4. FERROUS SULFATE TAB [Concomitant]
  5. VITAMIN D [Concomitant]
  6. NEXIUM [Concomitant]
  7. VITAMIN C [Concomitant]
  8. POTASSIUM [Concomitant]
  9. LASIX [Concomitant]
  10. SPIRIVA [Suspect]
  11. ATENOLICHLOR [Concomitant]

REACTIONS (2)
  - DYSPNOEA [None]
  - OEDEMA PERIPHERAL [None]
